FAERS Safety Report 6589592-4 (Version None)
Quarter: 2010Q1

REPORT INFORMATION
  Report Type: 
  Country: None (occurrence: None)
  Receive Date: 20100212
  Receipt Date: 20100127
  Transmission Date: 20100710
  Serious: Yes (Death)
  Sender: FDA-Public Use
  Company Number: 2009AL007958

PATIENT
  Age: 40 Year
  Sex: Male

DRUGS (7)
  1. DIAZEPAM [Suspect]
     Indication: DRUG USE FOR UNKNOWN INDICATION
  2. KADIAN [Suspect]
     Indication: DRUG USE FOR UNKNOWN INDICATION
  3. SERTRALINE HCL [Suspect]
     Indication: DRUG USE FOR UNKNOWN INDICATION
  4. TEMAZEPAM [Suspect]
     Indication: DRUG USE FOR UNKNOWN INDICATION
  5. HYDROCODONE [Concomitant]
  6. CODEINE SULFATE [Concomitant]
  7. CANNABIS [Concomitant]

REACTIONS (6)
  - ACCIDENTAL OVERDOSE [None]
  - CARDIOMEGALY [None]
  - DRUG TOXICITY [None]
  - HEPATIC STEATOSIS [None]
  - HEPATOSPLENOMEGALY [None]
  - HYPERTROPHIC CARDIOMYOPATHY [None]
